FAERS Safety Report 6146237-5 (Version None)
Quarter: 2009Q2

REPORT INFORMATION
  Report Type: 
  Country: None (occurrence: None)
  Receive Date: 20090406
  Receipt Date: 20090406
  Transmission Date: 20091009
  Serious: Yes (Hospitalization)
  Sender: FDA-Public Use
  Company Number: None

PATIENT
  Age: 62 Year
  Sex: Male
  Weight: 157.2 kg

DRUGS (2)
  1. METHADONE HCL [Suspect]
     Indication: PAIN
     Dosage: 10 MG QID PO
     Route: 048
     Dates: start: 20090226, end: 20090227
  2. OXYCODONE AND ACETAMINOPHEN [Suspect]
     Indication: PAIN
     Dosage: 1-2 TAB QID PO
     Route: 048
     Dates: start: 20080930, end: 20090225

REACTIONS (9)
  - ALCOHOL ABUSE [None]
  - BLOOD CREATINE PHOSPHOKINASE INCREASED [None]
  - DRUG ABUSE [None]
  - MENTAL STATUS CHANGES [None]
  - RENAL FAILURE [None]
  - RESPIRATORY DEPRESSION [None]
  - SEDATION [None]
  - SOMNOLENCE [None]
  - UNRESPONSIVE TO STIMULI [None]
